FAERS Safety Report 25920008 (Version 1)
Quarter: 2025Q4

REPORT INFORMATION
  Report Type: Spontaneous
  Country: US (occurrence: None)
  Receive Date: 20251010
  Receipt Date: 20251010
  Transmission Date: 20260118
  Serious: No
  Sender: FDA-CTU
  Company Number: None

PATIENT
  Sex: Female

DRUGS (1)
  1. ZURZUVAE [Suspect]
     Active Substance: ZURANOLONE
     Indication: Perinatal depression
     Dosage: 50 MG AT BEDTIME ORAL ?
     Route: 048
     Dates: start: 20250923, end: 20250924

REACTIONS (5)
  - Fatigue [None]
  - Sedation [None]
  - Exposure via breast milk [None]
  - Unresponsive to stimuli [None]
  - Therapy cessation [None]
